FAERS Safety Report 8059101-1 (Version None)
Quarter: 2012Q1

REPORT INFORMATION
  Report Type: 
  Country: None (occurrence: None)
  Receive Date: 20120120
  Receipt Date: 20120112
  Transmission Date: 20120608
  Serious: Yes (Other)
  Sender: FDA-Public Use
  Company Number: US-JNJFOC-20120106215

PATIENT
  Age: 83 Year
  Sex: Female
  Weight: 56.7 kg

DRUGS (5)
  1. ALPRAZOLAM [Concomitant]
     Indication: ANXIETY
     Route: 065
     Dates: start: 20020101
  2. MOTRIN IB [Suspect]
     Indication: PAIN IN EXTREMITY
     Dosage: 2-3 AS NEEDED
     Route: 048
     Dates: end: 20111218
  3. ASPIRIN [Concomitant]
     Indication: HEADACHE
     Route: 065
  4. MOTRIN IB [Suspect]
     Indication: FIBROMYALGIA
     Dosage: 2-3 AS NEEDED
     Route: 048
     Dates: end: 20111218
  5. EXTRA STRENGTH TYLENOL [Concomitant]
     Indication: PAIN
     Dosage: 1 AND 1/3 AS NEEDED
     Route: 065
     Dates: start: 20120101

REACTIONS (3)
  - FALL [None]
  - INCORRECT DOSE ADMINISTERED [None]
  - BLOOD PRESSURE INCREASED [None]
